FAERS Safety Report 15644130 (Version 2)
Quarter: 2018Q4

REPORT INFORMATION
  Report Type: Report from Study
  Country: RO (occurrence: RO)
  Receive Date: 20181121
  Receipt Date: 20181128
  Transmission Date: 20190205
  Serious: Yes (Death, Hospitalization, Other)
  Sender: FDA-Public Use
  Company Number: RO-EMD SERONO-9052492

PATIENT
  Age: 48 Year
  Sex: Female

DRUGS (2)
  1. REBIF [Suspect]
     Active Substance: INTERFERON BETA-1A
     Indication: SECONDARY PROGRESSIVE MULTIPLE SCLEROSIS
  2. REBIF [Suspect]
     Active Substance: INTERFERON BETA-1A
     Indication: RELAPSING-REMITTING MULTIPLE SCLEROSIS
     Route: 058
     Dates: start: 20060601, end: 20180915

REACTIONS (8)
  - Ovarian cancer [Unknown]
  - Death [Fatal]
  - Secondary progressive multiple sclerosis [Unknown]
  - Osteoarthritis [Unknown]
  - Off label use [Unknown]
  - Neurogenic bladder [Unknown]
  - Urinary tract obstruction [Unknown]
  - Intervertebral disc disorder [Unknown]

NARRATIVE: CASE EVENT DATE: 2014
